FAERS Safety Report 4333205-9 (Version None)
Quarter: 2004Q2

REPORT INFORMATION
  Report Type: 
  Country: None (occurrence: None)
  Receive Date: 20040402
  Receipt Date: 20040324
  Transmission Date: 20050107
  Serious: Yes (Hospitalization)
  Sender: FDA-Public Use
  Company Number: HQWYE457401MAR04

PATIENT
  Age: 76 Year
  Sex: Male

DRUGS (6)
  1. OROKEN (CEFIXIME, TABLET) [Suspect]
     Dosage: 2 TABLETS DAILY, ORAL
     Route: 048
     Dates: start: 20040104, end: 20040109
  2. ACETAMINOPHEN [Suspect]
     Dosage: 2 U, ORAL
     Route: 048
     Dates: end: 20040112
  3. DAFLON (DIOSMIN) [Suspect]
     Dosage: 1 TABLET, ORAL
     Route: 048
     Dates: end: 20040112
  4. LIPANTHYL ^FURNIER^ (FENOFIBRATE) [Suspect]
     Dosage: 160 MG, ORAL
     Route: 048
     Dates: end: 20040112
  5. OFLOCET (OFLOXACIN) [Suspect]
     Dosage: 400 MG, ORAL
     Route: 048
     Dates: start: 20040104, end: 20040109
  6. LOVENOX [Concomitant]

REACTIONS (6)
  - CYTOLYTIC HEPATITIS [None]
  - DIARRHOEA [None]
  - INFECTION [None]
  - LEUKOPENIA [None]
  - NEUTROPENIA [None]
  - STREPTOCOCCAL BACTERAEMIA [None]
